FAERS Safety Report 5069039-X (Version None)
Quarter: 2006Q3

REPORT INFORMATION
  Report Type: 
  Country: None (occurrence: None)
  Receive Date: 20060728
  Receipt Date: 20060720
  Transmission Date: 20061208
  Serious: Yes (Other)
  Sender: FDA-Public Use
  Company Number: 14425

PATIENT
  Age: 80 Year
  Sex: Male

DRUGS (1)
  1. AMIODARONE HCL [Suspect]
     Indication: ATRIAL FIBRILLATION

REACTIONS (2)
  - CRYPTOGENIC ORGANISING PNEUMONIA [None]
  - THERAPY NON-RESPONDER [None]
